FAERS Safety Report 7799458-X (Version None)
Quarter: 2011Q4

REPORT INFORMATION
  Report Type: 
  Country: None (occurrence: None)
  Receive Date: 20111006
  Receipt Date: 20110921
  Transmission Date: 20120403
  Serious: Yes (Other)
  Sender: FDA-Public Use
  Company Number: PHFR2011GB04752

PATIENT
  Sex: Male
  Weight: 88.4 kg

DRUGS (2)
  1. CLOZAPINE [Suspect]
     Indication: SCHIZOPHRENIA
     Dosage: 125 MG/DAY
     Route: 048
     Dates: start: 20110613
  2. RISPERIDONE [Concomitant]
     Indication: SCHIZOPHRENIA
     Dosage: 8 MG/DAY
     Route: 048
     Dates: end: 20110815

REACTIONS (5)
  - DIZZINESS [None]
  - PLATELET COUNT DECREASED [None]
  - FALL [None]
  - ORTHOSTATIC HYPOTENSION [None]
  - DIFFERENTIAL WHITE BLOOD CELL COUNT ABNORMAL [None]
